FAERS Safety Report 9829836 (Version 1)
Quarter: 2014Q1

REPORT INFORMATION
  Report Type: Spontaneous
  Country: US (occurrence: US)
  Receive Date: 20140120
  Receipt Date: 20140120
  Transmission Date: 20141002
  Serious: No
  Sender: FDA-Public Use
  Company Number: US-009507513-1401USA002423

PATIENT
  Sex: Female

DRUGS (2)
  1. NUVARING [Suspect]
     Indication: CONTRACEPTION
  2. PLAN B ONE STEP [Suspect]
     Indication: CONTRACEPTION
     Dosage: 1.5 MG, 1 IN 1 DAY
     Route: 048

REACTIONS (1)
  - Menstruation delayed [Unknown]
